FAERS Safety Report 5694696-4 (Version None)
Quarter: 2008Q2

REPORT INFORMATION
  Report Type: 
  Country: None (occurrence: None)
  Receive Date: 20080404
  Receipt Date: 20080401
  Transmission Date: 20081010
  Serious: Yes (Other)
  Sender: FDA-Public Use
  Company Number: B0400701A

PATIENT
  Age: 50 Year
  Sex: Male

DRUGS (6)
  1. SEROXAT [Suspect]
     Indication: DEPRESSION
     Route: 065
     Dates: start: 20011228
  2. AMITRIPTYLINE HCL [Concomitant]
     Indication: DEPRESSION
  3. UNSPECIFIED DRUGS [Concomitant]
     Indication: DEPRESSION
  4. DIAZEPAM [Concomitant]
     Dates: start: 19890724
  5. PROZAC [Concomitant]
     Dates: start: 19970123
  6. AMITRIPTYLINE HCL [Concomitant]
     Dates: start: 19940507

REACTIONS (7)
  - AGGRESSION [None]
  - AGITATION [None]
  - DISTURBANCE IN ATTENTION [None]
  - MEMORY IMPAIRMENT [None]
  - NIGHTMARE [None]
  - SLEEP DISORDER [None]
  - SUICIDAL BEHAVIOUR [None]
